FAERS Safety Report 10016410 (Version 1)
Quarter: 2014Q1

REPORT INFORMATION
  Report Type: Spontaneous
  Country: US (occurrence: US)
  Receive Date: 20140317
  Receipt Date: 20140317
  Transmission Date: 20141002
  Serious: No
  Sender: FDA-Public Use
  Company Number: US-PFIZER INC-2014076514

PATIENT
  Age: 57 Year
  Sex: Male
  Weight: 142.86 kg

DRUGS (3)
  1. LYRICA [Suspect]
     Indication: DIABETIC NEUROPATHY
     Dosage: 100 MG, 3X/DAY
     Route: 048
     Dates: start: 201309, end: 201401
  2. HUMALOG [Concomitant]
     Indication: DIABETES MELLITUS
     Dosage: 40 IU, 2X/DAY
  3. LANTUS [Concomitant]
     Indication: DIABETES MELLITUS
     Dosage: 80 IU, 2X/DAY

REACTIONS (3)
  - Neuropathy peripheral [Unknown]
  - Pain [Unknown]
  - Burning sensation [Unknown]
